FAERS Safety Report 6576493-0 (Version None)
Quarter: 2010Q1

REPORT INFORMATION
  Report Type: 
  Country: None (occurrence: None)
  Receive Date: 20100210
  Receipt Date: 20100128
  Transmission Date: 20100710
  Serious: Yes (Other)
  Sender: FDA-Public Use
  Company Number: JP-PFIZER INC-2010012946

PATIENT
  Age: 70 Year
  Sex: Female

DRUGS (6)
  1. LIPITOR [Suspect]
     Indication: DYSLIPIDAEMIA
     Dosage: 10 MG, 1X/DAY
     Route: 048
     Dates: start: 20080701
  2. AZULFIDINE [Suspect]
     Indication: RHEUMATOID ARTHRITIS
     Dosage: 250 MG, 1X/DAY
     Route: 048
     Dates: start: 20091001
  3. CELECOX [Suspect]
     Indication: RHEUMATOID ARTHRITIS
     Dosage: 100 MG, 1X/DAY
     Route: 048
     Dates: start: 20091001
  4. MUCOSTA [Suspect]
  5. ADALAT CC [Concomitant]
     Dates: start: 20080701
  6. AMARYL [Concomitant]
     Dates: start: 20080701

REACTIONS (5)
  - BLOOD CHOLESTEROL INCREASED [None]
  - INTERSTITIAL LUNG DISEASE [None]
  - LOW DENSITY LIPOPROTEIN INCREASED [None]
  - MUSCULOSKELETAL PAIN [None]
  - PROTEIN TOTAL DECREASED [None]
